FAERS Safety Report 8590484-X (Version None)
Quarter: 2012Q3

REPORT INFORMATION
  Report Type: 
  Country: None (occurrence: None)
  Receive Date: 20120813
  Receipt Date: 20120807
  Transmission Date: 20120928
  Serious: Yes (Other)
  Sender: FDA-Public Use
  Company Number: PHEH2012US015053

PATIENT
  Sex: Male
  Weight: 124.72 kg

DRUGS (8)
  1. CARDIZEM [Concomitant]
     Dosage: UNK UKN, UNK
  2. SULFAMETHOXAZOLE [Concomitant]
     Dosage: UNK UKN, UNK
  3. DIOVAN [Suspect]
     Dosage: UNK UKN, UNK
  4. SIMVASTATIN [Concomitant]
     Dosage: UNK UKN, UNK
  5. HYDROCHLOROTHIAZIDE [Concomitant]
     Dosage: UNK UKN, UNK
  6. TRAZODONE HYDROCHLORIDE [Concomitant]
     Dosage: UNK UKN, UNK
  7. OXYCODONE [Concomitant]
     Dosage: UNK UKN, UNK
  8. ATENOLOL [Concomitant]
     Dosage: UNK UKN, UNK

REACTIONS (2)
  - RHINITIS [None]
  - ACCIDENT [None]
